FAERS Safety Report 4367878-1 (Version None)
Quarter: 2004Q2

REPORT INFORMATION
  Report Type: 
  Country: None (occurrence: None)
  Receive Date: 20040601
  Receipt Date: 20040601
  Transmission Date: 20050107
  Serious: Yes (Death)
  Sender: FDA-Public Use
  Company Number: None

PATIENT
  Age: 83 Year
  Sex: Male
  Weight: 97.5234 kg

DRUGS (1)
  1. CIALIS [Suspect]
     Dates: start: 20040407, end: 20040410

REACTIONS (1)
  - MYOCARDIAL INFARCTION [None]
